FAERS Safety Report 17494469 (Version 2)
Quarter: 2020Q2

REPORT INFORMATION
  Report Type: Report from Study
  Country: None (occurrence: CA)
  Receive Date: 20200304
  Receipt Date: 20200610
  Transmission Date: 20200713
  Serious: Yes (Hospitalization, Other)
  Sender: FDA-Public Use
  Company Number: CA-ABBVIE-20K-028-3302553-00

PATIENT
  Sex: Male

DRUGS (2)
  1. PURINETHOL [Concomitant]
     Active Substance: MERCAPTOPURINE
     Indication: PRODUCT USED FOR UNKNOWN INDICATION
  2. HUMIRA [Suspect]
     Active Substance: ADALIMUMAB
     Indication: CROHN^S DISEASE
     Route: 058
     Dates: start: 20090223

REACTIONS (6)
  - Therapeutic product effect decreased [Not Recovered/Not Resolved]
  - Gastrointestinal obstruction [Recovered/Resolved]
  - Abdominal pain [Not Recovered/Not Resolved]
  - Gastrointestinal pain [Unknown]
  - Malaise [Unknown]
  - Fatigue [Not Recovered/Not Resolved]
